FAERS Safety Report 14108691 (Version 1)
Quarter: 2017Q4

REPORT INFORMATION
  Report Type: Spontaneous
  Country: US (occurrence: US)
  Receive Date: 20171019
  Receipt Date: 20171019
  Transmission Date: 20180321
  Serious: No
  Sender: FDA-Public Use
  Company Number: US-NEUROCRINE BIOSCIENCES INC.-2017NBI00805

PATIENT
  Age: 56 Year
  Sex: Female
  Weight: 63.56 kg

DRUGS (8)
  1. CELEXA [Concomitant]
     Active Substance: CITALOPRAM HYDROBROMIDE
  2. INGREZZA [Suspect]
     Active Substance: VALBENAZINE
     Route: 048
     Dates: start: 20170829
  3. INGREZZA [Suspect]
     Active Substance: VALBENAZINE
     Indication: TARDIVE DYSKINESIA
     Route: 048
     Dates: start: 201708, end: 201708
  4. INGREZZA [Suspect]
     Active Substance: VALBENAZINE
     Route: 048
     Dates: start: 201708, end: 201708
  5. DEPAKOTE [Concomitant]
     Active Substance: DIVALPROEX SODIUM
     Dosage: QHS
  6. KLONOPIN [Concomitant]
     Active Substance: CLONAZEPAM
     Dosage: QHS
  7. ROPINIROLE. [Concomitant]
     Active Substance: ROPINIROLE
     Dosage: QHS
  8. CLOZARIL [Concomitant]
     Active Substance: CLOZAPINE
     Dosage: QHS

REACTIONS (2)
  - Hypoaesthesia oral [Not Recovered/Not Resolved]
  - Peripheral swelling [Not Recovered/Not Resolved]

NARRATIVE: CASE EVENT DATE: 201708
